FAERS Safety Report 14276107 (Version 2)
Quarter: 2018Q1

REPORT INFORMATION
  Report Type: Report from Study
  Country: US (occurrence: US)
  Receive Date: 20171212
  Receipt Date: 20180104
  Transmission Date: 20180508
  Serious: Yes (Hospitalization, Other)
  Sender: FDA-Public Use
  Company Number: US-GILEAD-2017-0309908

PATIENT
  Age: 84 Year
  Sex: Male
  Weight: 88 kg

DRUGS (25)
  1. AMBRISENTAN [Suspect]
     Active Substance: AMBRISENTAN
     Indication: ATRIAL SEPTAL DEFECT
  2. PREDNISONE. [Concomitant]
     Active Substance: PREDNISONE
  3. SYMBICORT [Concomitant]
     Active Substance: BUDESONIDE\FORMOTEROL FUMARATE DIHYDRATE
  4. SENNA PLUS                         /00142201/ [Concomitant]
  5. O2                                 /00150301/ [Concomitant]
     Active Substance: OXYGEN
  6. AMBRISENTAN [Suspect]
     Active Substance: AMBRISENTAN
     Indication: HEART DISEASE CONGENITAL
  7. SPIRONOLACTONE. [Concomitant]
     Active Substance: SPIRONOLACTONE
  8. MAG OXIDE [Concomitant]
     Active Substance: MAGNESIUM OXIDE
  9. MORPHINE SULFATE. [Concomitant]
     Active Substance: MORPHINE SULFATE
  10. RIOCIGUAT [Concomitant]
     Active Substance: RIOCIGUAT
  11. TORSEMIDE. [Concomitant]
     Active Substance: TORSEMIDE
  12. KCL [Concomitant]
     Active Substance: POTASSIUM CHLORIDE
  13. COLCRYS [Concomitant]
     Active Substance: COLCHICINE
  14. STIOLTO RESPIMAT [Concomitant]
     Active Substance: OLODATEROL HYDROCHLORIDE\TIOTROPIUM BROMIDE MONOHYDRATE
  15. DOCUSATE SODIUM. [Concomitant]
     Active Substance: DOCUSATE SODIUM
  16. TYVASO [Concomitant]
     Active Substance: TREPROSTINIL
  17. METOPROLOL. [Concomitant]
     Active Substance: METOPROLOL
  18. METOLAZONE. [Concomitant]
     Active Substance: METOLAZONE
  19. BROVANA [Concomitant]
     Active Substance: ARFORMOTEROL TARTRATE
  20. COUMADIN [Concomitant]
     Active Substance: WARFARIN SODIUM
  21. VITAMIN D3 [Concomitant]
     Active Substance: CHOLECALCIFEROL
  22. XOPENEX [Concomitant]
     Active Substance: LEVALBUTEROL HYDROCHLORIDE
  23. AMBRISENTAN [Suspect]
     Active Substance: AMBRISENTAN
     Indication: PULMONARY ARTERIAL HYPERTENSION
     Dosage: 5 MG, QD
     Route: 048
     Dates: start: 20130108
  24. VENTOLIN [Concomitant]
     Active Substance: ALBUTEROL SULFATE
  25. LORATADINE. [Concomitant]
     Active Substance: LORATADINE

REACTIONS (1)
  - Cardiac failure congestive [Unknown]
